FAERS Safety Report 4988543-3 (Version None)
Quarter: 2006Q2

REPORT INFORMATION
  Report Type: 
  Country: None (occurrence: None)
  Receive Date: 20060502
  Receipt Date: 20060427
  Transmission Date: 20061013
  Serious: Yes (Other)
  Sender: FDA-Public Use
  Company Number: US-GLAXOSMITHKLINE-A0603635A

PATIENT
  Sex: Female

DRUGS (3)
  1. LAMICTAL [Suspect]
     Indication: BIPOLAR DISORDER
     Route: 048
  2. LITHIUM CARBONATE [Concomitant]
  3. ANTIDEPRESSANT [Concomitant]

REACTIONS (5)
  - BLOOD FOLATE DECREASED [None]
  - BLOOD TRIGLYCERIDES INCREASED [None]
  - HEPATOCELLULAR DAMAGE [None]
  - HYPOVITAMINOSIS [None]
  - VITAMIN B COMPLEX DEFICIENCY [None]
